FAERS Safety Report 7909916-2 (Version None)
Quarter: 2011Q4

REPORT INFORMATION
  Report Type: 
  Country: None (occurrence: None)
  Receive Date: 20111111
  Receipt Date: 20111104
  Transmission Date: 20120403
  Serious: Yes (Death)
  Sender: FDA-Public Use
  Company Number: FR-ROCHE-1003982

PATIENT
  Age: 61 Year
  Sex: Male

DRUGS (13)
  1. AMLODIPINE BESYLATE [Concomitant]
  2. OMEPRAZOLE [Concomitant]
  3. BISOPROLOL FUMARATE [Concomitant]
  4. FORLAX (FRANCE) [Concomitant]
  5. MORPHINE [Concomitant]
  6. AMITRIPTYLINE HCL [Concomitant]
     Route: 042
  7. PLAVIX [Concomitant]
  8. ROCEPHIN [Suspect]
     Indication: LUNG INFECTION
     Route: 042
     Dates: start: 20111005
  9. VALIUM [Concomitant]
  10. ACETAMINOPHEN [Concomitant]
  11. PRIMPERAN (FRANCE) [Concomitant]
  12. LANTUS [Concomitant]
  13. RAMIPRIL [Concomitant]

REACTIONS (3)
  - LUNG NEOPLASM MALIGNANT [None]
  - MEDICATION ERROR [None]
  - NO ADVERSE EVENT [None]
